FAERS Safety Report 13878886 (Version 1)
Quarter: 2017Q3

REPORT INFORMATION
  Report Type: Spontaneous
  Country: FR (occurrence: FR)
  Receive Date: 20170817
  Receipt Date: 20170817
  Transmission Date: 20171127
  Serious: Yes (Other)
  Sender: FDA-Public Use
  Company Number: FR-ABBVIE-17P-056-2074384-00

PATIENT
  Sex: Female

DRUGS (1)
  1. DEPAKINE CHRONO [Suspect]
     Active Substance: VALPROATE SODIUM
     Indication: EPILEPSY
     Dosage: EXTENDED RELEASE
     Route: 048

REACTIONS (6)
  - Eating disorder [Unknown]
  - Hepatomegaly [Unknown]
  - Fatigue [Unknown]
  - Diarrhoea [Unknown]
  - Liver injury [Unknown]
  - Hepatitis [Unknown]
